FAERS Safety Report 4305732-1 (Version None)
Quarter: 2004Q1

REPORT INFORMATION
  Report Type: 
  Country: None (occurrence: None)
  Receive Date: 20040225
  Receipt Date: 20040210
  Transmission Date: 20041129
  Serious: Yes (Hospitalization)
  Sender: FDA-Public Use
  Company Number: USA040258952

PATIENT
  Age: 76 Year
  Sex: Female

DRUGS (2)
  1. EVISTA [Suspect]
     Indication: BREAST CANCER
     Dates: start: 20031101
  2. EVISTA [Suspect]
     Indication: PROPHYLAXIS
     Dates: start: 20031101

REACTIONS (3)
  - FOREIGN BODY TRAUMA [None]
  - HOT FLUSH [None]
  - NIPPLE DISORDER [None]
